FAERS Safety Report 9719282 (Version 6)
Quarter: 2014Q2

REPORT INFORMATION
  Report Type: Report from Study
  Country: US (occurrence: US)
  Receive Date: 20131127
  Receipt Date: 20140609
  Transmission Date: 20141212
  Serious: Yes (Death, Other)
  Sender: FDA-Public Use
  Company Number: PHEH2013US024679

PATIENT
  Sex: Male

DRUGS (1)
  1. TOBI [Suspect]
     Indication: CYSTIC FIBROSIS
     Dosage: 300 MG, TWICE A DAY EVERY OTHER MONTH
     Route: 055
     Dates: start: 20090708

REACTIONS (4)
  - Cystic fibrosis [Fatal]
  - Respiratory failure [Unknown]
  - Empyema [Unknown]
  - Staphylococcal bacteraemia [Unknown]
